FAERS Safety Report 16933326 (Version 1)
Quarter: 2019Q4

REPORT INFORMATION
  Report Type: Spontaneous
  Country: US (occurrence: US)
  Receive Date: 20191018
  Receipt Date: 20191018
  Transmission Date: 20200122
  Serious: Yes (Other)
  Sender: FDA-Public Use
  Company Number: US-BIO PRODUCTS LABORATORY LTD-2075808

PATIENT
  Age: 38 Year

DRUGS (2)
  1. GENERIC IVIG [Suspect]
     Active Substance: HUMAN IMMUNOGLOBULIN G
     Indication: AUTOIMMUNE DISORDER
     Route: 042
  2. INTRA-LESIONAL STEROID INJECTIONS [Concomitant]

REACTIONS (3)
  - Off label use [Recovered/Resolved]
  - Cavernous sinus thrombosis [Recovered/Resolved]
  - Ophthalmic vein thrombosis [Recovered/Resolved]
